FAERS Safety Report 19813532 (Version 1)
Quarter: 2021Q3

REPORT INFORMATION
  Report Type: Spontaneous
  Country: US (occurrence: US)
  Receive Date: 20210909
  Receipt Date: 20210909
  Transmission Date: 20211014
  Serious: Yes (Other)
  Sender: FDA-Public Use
  Company Number: None

PATIENT
  Age: 61 Year
  Sex: Female
  Weight: 92.7 kg

DRUGS (22)
  1. MELATONIN [Concomitant]
     Active Substance: MELATONIN
  2. ASPIRIN. [Concomitant]
     Active Substance: ASPIRIN
  3. FOLIC ACID. [Concomitant]
     Active Substance: FOLIC ACID
  4. FUROSEMIDE. [Concomitant]
     Active Substance: FUROSEMIDE
  5. FERROUS SULFATE. [Concomitant]
     Active Substance: FERROUS SULFATE
  6. SUCRALFATE. [Concomitant]
     Active Substance: SUCRALFATE
  7. ATORVASTATIN [Concomitant]
     Active Substance: ATORVASTATIN
  8. LORATADINE. [Concomitant]
     Active Substance: LORATADINE
  9. VITAMIN D [Concomitant]
     Active Substance: VITAMIN D NOS
  10. SPRYCEL [Suspect]
     Active Substance: DASATINIB
     Indication: CHRONIC MYELOID LEUKAEMIA
     Route: 048
     Dates: start: 20190615
  11. ZOFRAN [Concomitant]
     Active Substance: ONDANSETRON HYDROCHLORIDE
  12. STOOL SOFTENER (DOCUSATE) [Concomitant]
     Active Substance: DOCUSATE
  13. HYDROCODONE?APAP [Concomitant]
     Active Substance: ACETAMINOPHEN\HYDROCODONE
  14. ROPINIROLE. [Concomitant]
     Active Substance: ROPINIROLE
  15. METOPROLOL. [Concomitant]
     Active Substance: METOPROLOL
  16. CYCLOBENZAPRINE. [Concomitant]
     Active Substance: CYCLOBENZAPRINE
  17. MIRALAX [Concomitant]
     Active Substance: POLYETHYLENE GLYCOL 3350
  18. OMEPRAZOLE. [Concomitant]
     Active Substance: OMEPRAZOLE
  19. FLUTICASONE. [Concomitant]
     Active Substance: FLUTICASONE
  20. POTASSIUM CHLORIDE. [Concomitant]
     Active Substance: POTASSIUM CHLORIDE
  21. LOTRISONE [Concomitant]
     Active Substance: BETAMETHASONE DIPROPIONATE\CLOTRIMAZOLE
  22. TRIAMCINOLONE [Concomitant]
     Active Substance: TRIAMCINOLONE

REACTIONS (1)
  - Nausea [None]

NARRATIVE: CASE EVENT DATE: 20210909
